FAERS Safety Report 25996656 (Version 1)
Quarter: 2025Q4

REPORT INFORMATION
  Report Type: Spontaneous
  Country: US (occurrence: US)
  Receive Date: 20251104
  Receipt Date: 20251104
  Transmission Date: 20260118
  Serious: Yes (Hospitalization)
  Sender: INSUD PHARMA
  Company Number: US-INSUD PHARMA-2510US08869

PATIENT

DRUGS (1)
  1. GALLIFREY [Suspect]
     Active Substance: NORETHINDRONE ACETATE
     Indication: Menstrual disorder
     Dosage: 10 MILLIGRAM TWICE DAILY
     Route: 048
     Dates: start: 20250814, end: 20250828

REACTIONS (2)
  - Gallbladder disorder [Unknown]
  - Product use issue [Unknown]

NARRATIVE: CASE EVENT DATE: 20250814
